FAERS Safety Report 20173328 (Version 2)
Quarter: 2022Q1

REPORT INFORMATION
  Report Type: Report from Study
  Country: US (occurrence: US)
  Receive Date: 20211211
  Receipt Date: 20220127
  Transmission Date: 20220423
  Serious: Yes (Hospitalization)
  Sender: FDA-Public Use
  Company Number: US-REGENERON PHARMACEUTICALS, INC.-2021-112107

PATIENT

DRUGS (9)
  1. CEMIPLIMAB [Suspect]
     Active Substance: CEMIPLIMAB
     Indication: Brain stem glioma
     Dosage: 4.5 MG/KG, Q2W, DAYS 1 AND 15 OF 28-DAY CYCLES
     Route: 042
     Dates: start: 20210922, end: 20211103
  2. CEMIPLIMAB [Suspect]
     Active Substance: CEMIPLIMAB
     Dosage: 4.5 MG/KG, Q2W, DAYS 1 AND 15 OF 28-DAY CYCLES
     Route: 042
     Dates: start: 20211215
  3. RADIATION THERAPY [Concomitant]
     Active Substance: RADIATION THERAPY
     Indication: Brain stem glioma
     Dosage: 3 GY
     Dates: start: 20210923, end: 20211012
  4. DEXAMETHASONE [Concomitant]
     Active Substance: DEXAMETHASONE
     Indication: Neoplasm
     Dosage: 1 MG, QD
     Route: 048
     Dates: start: 20211005, end: 20211103
  5. PROPOFOL [Concomitant]
     Active Substance: PROPOFOL
     Indication: Sedation
     Dosage: 150.1 MG, AS NECESSARY
     Route: 042
     Dates: start: 20210920
  6. PROPOFOL [Concomitant]
     Active Substance: PROPOFOL
     Indication: Radiotherapy
  7. OMEPRAZOLE [Concomitant]
     Active Substance: OMEPRAZOLE
     Indication: Gastrointestinal disorder prophylaxis
     Dosage: 20 MG, QD
     Route: 048
     Dates: start: 20210914
  8. MIRALAX [Concomitant]
     Active Substance: POLYETHYLENE GLYCOL 3350
     Indication: Constipation prophylaxis
     Dosage: 8.5 G, QD
     Route: 048
     Dates: start: 20210922
  9. ONDANSETRON [Concomitant]
     Active Substance: ONDANSETRON
     Indication: Vomiting
     Dosage: 4 MG, AS NECESSARY
     Route: 048
     Dates: start: 20211117

REACTIONS (1)
  - Tumour pseudoprogression [Recovered/Resolved]

NARRATIVE: CASE EVENT DATE: 20211201
